FAERS Safety Report 22648435 (Version 2)
Quarter: 2024Q2

REPORT INFORMATION
  Report Type: Spontaneous
  Country: JP (occurrence: JP)
  Receive Date: 20230628
  Receipt Date: 20240403
  Transmission Date: 20240716
  Serious: Yes (Other)
  Sender: FDA-Public Use
  Company Number: JP-AMGEN-JPNSP2023110141

PATIENT
  Age: 74 Year
  Sex: Female

DRUGS (3)
  1. LUMAKRAS [Suspect]
     Active Substance: SOTORASIB
     Indication: K-ras gene mutation
     Dosage: 960 MILLIGRAM
     Route: 048
     Dates: start: 20230502, end: 20230609
  2. LUMAKRAS [Suspect]
     Active Substance: SOTORASIB
     Indication: Non-small cell lung cancer
     Dosage: 480 MILLIGRAM (DOSE REDUCED)
     Route: 048
     Dates: start: 20230721, end: 2023
  3. LUMAKRAS [Suspect]
     Active Substance: SOTORASIB
     Dosage: 240 MILLIGRAM
     Route: 048
     Dates: start: 20230818

REACTIONS (1)
  - Hepatic function abnormal [Recovering/Resolving]

NARRATIVE: CASE EVENT DATE: 20230609
